FAERS Safety Report 14103074 (Version 1)
Quarter: 2017Q4

REPORT INFORMATION
  Report Type: Spontaneous
  Country: US (occurrence: US)
  Receive Date: 20171018
  Receipt Date: 20171018
  Transmission Date: 20180321
  Serious: Yes (Death, Other)
  Sender: FDA-Public Use
  Company Number: US-OTSUKA-2015_013102

PATIENT
  Age: 86 Year
  Sex: Female

DRUGS (9)
  1. REMERON [Concomitant]
     Active Substance: MIRTAZAPINE
     Indication: APPETITE DISORDER
     Dosage: 15 MG, UNK
     Route: 065
     Dates: start: 20150721, end: 20150810
  2. XANAX [Concomitant]
     Active Substance: ALPRAZOLAM
     Indication: ANXIETY
     Dosage: 125 MG, BID
     Route: 065
     Dates: start: 20150830
  3. SINEMET [Concomitant]
     Active Substance: CARBIDOPA\LEVODOPA
     Indication: PRODUCT USED FOR UNKNOWN INDICATION
     Dosage: 25/100 MG
     Route: 065
     Dates: start: 20150721
  4. NUEDEXTA [Suspect]
     Active Substance: DEXTROMETHORPHAN HYDROBROMIDE\QUINIDINE SULFATE
     Indication: AFFECT LABILITY
     Dosage: UNK, QD
     Route: 048
     Dates: start: 20150909, end: 20150921
  5. ZOLOFT [Concomitant]
     Active Substance: SERTRALINE HYDROCHLORIDE
     Indication: ANTIDEPRESSANT THERAPY
     Dosage: 50 MG, QD
     Route: 065
     Dates: start: 20150721, end: 20150810
  6. RISPERIDONE. [Concomitant]
     Active Substance: RISPERIDONE
     Indication: PSYCHOTIC DISORDER
     Dosage: 25 MG DAILY OR PRN
     Route: 065
     Dates: start: 20150824
  7. NUEDEXTA [Suspect]
     Active Substance: DEXTROMETHORPHAN HYDROBROMIDE\QUINIDINE SULFATE
     Dosage: UNK, BID
     Route: 048
     Dates: start: 20150922, end: 20150929
  8. ZOLOFT [Concomitant]
     Active Substance: SERTRALINE HYDROCHLORIDE
     Dosage: 62.5 MG, QD
     Route: 065
     Dates: start: 20150811
  9. REMERON [Concomitant]
     Active Substance: MIRTAZAPINE
     Dosage: 7.5 MG, UNK
     Route: 065
     Dates: start: 20150811

REACTIONS (7)
  - Renal failure [Fatal]
  - Fatigue [Unknown]
  - Asthenia [Unknown]
  - Aphasia [Unknown]
  - Unresponsive to stimuli [Unknown]
  - Dysphagia [Not Recovered/Not Resolved]
  - Malaise [Unknown]

NARRATIVE: CASE EVENT DATE: 20150909
